FAERS Safety Report 9703403 (Version 1)
Quarter: 2013Q4

REPORT INFORMATION
  Report Type: Report from Study
  Country: TH (occurrence: TH)
  Receive Date: 20131122
  Receipt Date: 20131122
  Transmission Date: 20140711
  Serious: Yes (Death)
  Sender: FDA-Public Use
  Company Number: PHHY2013TH133368

PATIENT
  Age: 48 Year
  Sex: Female

DRUGS (2)
  1. ZOMETA [Suspect]
     Indication: METASTASES TO BONE
     Dosage: 4 MG PER TIME PER MONTH
     Route: 041
  2. ZOMETA [Suspect]
     Dosage: 4 MG PER TIME PER MONTH
     Route: 041
     Dates: start: 20130618

REACTIONS (2)
  - General physical health deterioration [Fatal]
  - Aphagia [Fatal]
